FAERS Safety Report 23554731 (Version 1)
Quarter: 2024Q1

REPORT INFORMATION
  Report Type: Spontaneous
  Country: DE (occurrence: DE)
  Receive Date: 20240222
  Receipt Date: 20240222
  Transmission Date: 20240410
  Serious: Yes (Other)
  Sender: FDA-Public Use
  Company Number: DE-BAYER-2024A024080

PATIENT
  Age: 74 Year
  Sex: Male

DRUGS (1)
  1. NUBEQA [Suspect]
     Active Substance: DAROLUTAMIDE
     Indication: Prostate cancer
     Dosage: UNK
     Dates: end: 20240212

REACTIONS (6)
  - Dry skin [None]
  - Skin wound [None]
  - Hair growth abnormal [None]
  - Penile size reduced [None]
  - Erectile dysfunction [Not Recovered/Not Resolved]
  - Adverse drug reaction [None]
